FAERS Safety Report 18127822 (Version 2)
Quarter: 2021Q1

REPORT INFORMATION
  Report Type: Spontaneous
  Country: US (occurrence: US)
  Receive Date: 20200810
  Receipt Date: 20210325
  Transmission Date: 20210419
  Serious: Yes (Other)
  Sender: FDA-Public Use
  Company Number: US-GLAXOSMITHKLINE-US2020154473

PATIENT
  Sex: Female

DRUGS (9)
  1. ZANTAC [Suspect]
     Active Substance: RANITIDINE HYDROCHLORIDE
     Indication: NEOPLASM MALIGNANT
     Dosage: 150 MG, QD
     Route: 065
     Dates: start: 199006, end: 202001
  2. RANITIDINE CAPSULE [Suspect]
     Active Substance: RANITIDINE
     Indication: NEOPLASM MALIGNANT
     Dosage: 150 MG, QD
     Route: 065
     Dates: start: 201202, end: 202002
  3. RANITIDINE. [Suspect]
     Active Substance: RANITIDINE
     Indication: NEOPLASM MALIGNANT
     Dosage: 150 MG, QD
     Route: 065
     Dates: start: 201202, end: 202002
  4. ZANTAC [Suspect]
     Active Substance: RANITIDINE HYDROCHLORIDE
     Indication: NEOPLASM MALIGNANT
     Dosage: 150 MG, QD
     Route: 065
     Dates: start: 199006, end: 202001
  5. RANITIDINE. [Suspect]
     Active Substance: RANITIDINE
     Indication: NEOPLASM MALIGNANT
     Dosage: 150 MG, QD
     Route: 065
     Dates: start: 201202, end: 202002
  6. RANITIDINE. [Suspect]
     Active Substance: RANITIDINE
     Route: 065
  7. ZANTAC [Suspect]
     Active Substance: RANITIDINE HYDROCHLORIDE
     Route: 065
  8. ZANTAC [Suspect]
     Active Substance: RANITIDINE HYDROCHLORIDE
     Indication: NEOPLASM MALIGNANT
     Dosage: 150 MG, QD
     Route: 065
     Dates: start: 199006, end: 202001
  9. RANITIDINE. [Suspect]
     Active Substance: RANITIDINE
     Indication: NEOPLASM MALIGNANT
     Dosage: 150 MG, QD
     Route: 065
     Dates: start: 201202, end: 202002

REACTIONS (2)
  - Breast cancer [Unknown]
  - Thyroid cancer [Unknown]
